FAERS Safety Report 4982210-8 (Version None)
Quarter: 2006Q2

REPORT INFORMATION
  Report Type: 
  Country: None (occurrence: None)
  Receive Date: 20060421
  Receipt Date: 20060406
  Transmission Date: 20061013
  Serious: Yes (Other)
  Sender: FDA-Public Use
  Company Number: C-06-0018

PATIENT
  Age: 6 Year
  Sex: Female
  Weight: 31.2982 kg

DRUGS (2)
  1. PHENYTOIN [Suspect]
     Indication: CONVULSION
     Dosage: 6 ML, 2 TIMES PER DAY
     Dates: start: 19940101
  2. DEPAKOTE [Concomitant]

REACTIONS (17)
  - AGEUSIA [None]
  - ANOREXIA [None]
  - CONFUSIONAL STATE [None]
  - CONSTIPATION [None]
  - DRUG INEFFECTIVE [None]
  - DYSTONIA [None]
  - GINGIVAL BLEEDING [None]
  - INSOMNIA [None]
  - LETHARGY [None]
  - LEUKOPENIA [None]
  - LYMPHADENOPATHY [None]
  - NAUSEA [None]
  - OSTEOMALACIA [None]
  - SOMNOLENCE [None]
  - THROMBOCYTOPENIA [None]
  - TREMOR [None]
  - VOMITING [None]
